FAERS Safety Report 10759122 (Version 1)
Quarter: 2015Q1

REPORT INFORMATION
  Report Type: Spontaneous
  Country: US (occurrence: None)
  Receive Date: 20150202
  Receipt Date: 20150202
  Transmission Date: 20150721
  Serious: Yes (Life-Threatening, Disabling)
  Sender: FDA-Public Use
  Company Number: None

PATIENT
  Age: 19 Year
  Sex: Male
  Weight: 77.11 kg

DRUGS (1)
  1. CHANTIX [Suspect]
     Active Substance: VARENICLINE TARTRATE
     Indication: SMOKING CESSATION THERAPY
     Dosage: STOPPED AT 1MG, 2 PILLS/ DAY
     Route: 048

REACTIONS (5)
  - Suicidal behaviour [None]
  - Depression [None]
  - Abnormal behaviour [None]
  - Psoriasis [None]
  - Feeling abnormal [None]
